FAERS Safety Report 12849907 (Version 2)
Quarter: 2016Q4

REPORT INFORMATION
  Report Type: Spontaneous
  Country: US (occurrence: US)
  Receive Date: 20161014
  Receipt Date: 20161128
  Transmission Date: 20170207
  Serious: Yes (Death, Life-Threatening, Hospitalization)
  Sender: FDA-Public Use
  Company Number: US-PFIZER INC-2016477629

PATIENT
  Age: 55 Year
  Sex: Male
  Weight: 97 kg

DRUGS (4)
  1. SUTENT [Suspect]
     Active Substance: SUNITINIB MALATE
     Indication: METASTATIC RENAL CELL CARCINOMA
     Dosage: 37.5 MG, DAILY
     Route: 048
     Dates: start: 20160812
  2. OXYCODONE [Concomitant]
     Active Substance: OXYCODONE
     Indication: BACK PAIN
     Dosage: UNK
  3. INSULIN [Concomitant]
     Active Substance: INSULIN NOS
     Indication: DIABETES MELLITUS
     Dosage: UNK
  4. SUTENT [Suspect]
     Active Substance: SUNITINIB MALATE
     Dosage: 37.5 MG ONCE DAILY AT 8 PM FOR 4 WEEKS AND THEN OFF TWO WEEKS
     Route: 048
     Dates: start: 20160902

REACTIONS (8)
  - Vomiting [Unknown]
  - Lethargy [Unknown]
  - Malaise [Unknown]
  - Cerebral haemorrhage [Fatal]
  - Urinary tract infection [Unknown]
  - Nausea [Unknown]
  - Restlessness [Unknown]
  - Neoplasm progression [Fatal]

NARRATIVE: CASE EVENT DATE: 2016
